FAERS Safety Report 4510570-0 (Version None)
Quarter: 2004Q4

REPORT INFORMATION
  Report Type: 
  Country: None (occurrence: None)
  Receive Date: 20041122
  Receipt Date: 20041116
  Transmission Date: 20050328
  Serious: Yes (Death)
  Sender: FDA-Public Use
  Company Number: GBWYE208917NOV04

PATIENT

DRUGS (5)
  1. GEMTUZUMAB OZOGAMICIN (GEMTUZUMAB OZOGAMICIN, INJECTION) [Suspect]
     Indication: ACUTE MYELOID LEUKAEMIA
  2. ARA-C (CYTARABINE, , 0) [Suspect]
     Indication: ACUTE MYELOID LEUKAEMIA
     Dosage: 2 G ON DAYS 1-5
  3. FLUDARABINE (FLUDARABINE, ,0 ) [Suspect]
     Indication: ACUTE MYELOID LEUKAEMIA
     Dosage: 30 MG ON DAYS 1-5
  4. G-CSF (GRANULOCYTE COLONY STIMULATING FACTOR, , 0) [Suspect]
  5. IDARUBICIN (IDARUBICIN, , 0) [Suspect]
     Indication: ACUTE MYELOID LEUKAEMIA
     Dosage: 12 MG ON DAYS 2-4

REACTIONS (1)
  - DEATH [None]
